FAERS Safety Report 8041863 (Version 3)
Quarter: 2013Q3

REPORT INFORMATION
  Report Type: Report from Study
  Country: CA (occurrence: CA)
  Receive Date: 20110718
  Receipt Date: 20130913
  Transmission Date: 20140515
  Serious: Yes (Hospitalization)
  Sender: FDA-Public Use
  Company Number: CA-UCBSA-031200

PATIENT
  Age: 43 Year
  Sex: Female
  Weight: 71.5 kg

DRUGS (4)
  1. CERTOLIZUMAB PEGOL [Suspect]
     Indication: CROHN^S DISEASE
     Dosage: NBR OF DOSES 03, AT 0, 2 AND 4 WEEKS
     Route: 058
     Dates: start: 20080311, end: 200804
  2. CERTOLIZUMAB PEGOL [Suspect]
     Indication: CROHN^S DISEASE
     Route: 058
     Dates: start: 200804
  3. INFLIXIMAB [Concomitant]
     Indication: CROHN^S DISEASE
  4. PEGTRON [Concomitant]
     Indication: CROHN^S DISEASE

REACTIONS (1)
  - Vulval abscess [Recovered/Resolved]
